FAERS Safety Report 5107595-3 (Version None)
Quarter: 2006Q3

REPORT INFORMATION
  Report Type: 
  Country: None (occurrence: None)
  Receive Date: 20060913
  Receipt Date: 20060913
  Transmission Date: 20061208
  Serious: No
  Sender: FDA-Public Use
  Company Number: None

PATIENT
  Age: 81 Year
  Sex: Male
  Weight: 71.2147 kg

DRUGS (2)
  1. LOPRESSOR [Suspect]
     Indication: HYPERTENSION
  2. ADVICOR [Suspect]
     Indication: BLOOD CHOLESTEROL INCREASED

REACTIONS (11)
  - ABNORMAL BEHAVIOUR [None]
  - AGGRESSION [None]
  - AMNESIA [None]
  - CONFUSIONAL STATE [None]
  - FLUSHING [None]
  - MEMORY IMPAIRMENT [None]
  - NAUSEA [None]
  - PHYSICAL ASSAULT [None]
  - PRURITUS [None]
  - ROAD TRAFFIC ACCIDENT [None]
  - WEIGHT DECREASED [None]
